FAERS Safety Report 25405243 (Version 1)
Quarter: 2025Q2

REPORT INFORMATION
  Report Type: Spontaneous
  Country: GB (occurrence: GB)
  Receive Date: 20250606
  Receipt Date: 20250606
  Transmission Date: 20250717
  Serious: Yes (Life-Threatening)
  Sender: Kenvue
  Company Number: None

PATIENT

DRUGS (3)
  1. ACETAMINOPHEN [Suspect]
     Active Substance: ACETAMINOPHEN
     Indication: Lower respiratory tract infection
     Dosage: 1 GRAM, FOUR TIME A DAY
     Route: 048
     Dates: start: 20250528, end: 20250528
  2. ACETAMINOPHEN [Concomitant]
     Active Substance: ACETAMINOPHEN
     Indication: Lower respiratory tract infection
     Dosage: UNK, FOUR TIME A DAY, 2 TABLET
     Route: 048
     Dates: start: 20250512, end: 20250512
  3. ACETAMINOPHEN [Concomitant]
     Active Substance: ACETAMINOPHEN
     Indication: Product used for unknown indication
     Dosage: UNK, FOUR TIME A DAY, 2 TABLET
     Route: 048
     Dates: start: 20250528, end: 20250528

REACTIONS (1)
  - Abdominal pain [Recovered/Resolved]
